FAERS Safety Report 7942948-7 (Version None)
Quarter: 2011Q4

REPORT INFORMATION
  Report Type: 
  Country: None (occurrence: None)
  Receive Date: 20111128
  Receipt Date: 20111118
  Transmission Date: 20120403
  Serious: Yes (Other)
  Sender: FDA-Public Use
  Company Number: US-MERCK-1111USA02734

PATIENT
  Age: 71 Year
  Sex: Female

DRUGS (1)
  1. SINEMET [Suspect]
     Indication: PARKINSON'S DISEASE
     Route: 048
     Dates: start: 19970101

REACTIONS (10)
  - HEAD INJURY [None]
  - HAEMORRHAGE [None]
  - FALL [None]
  - DIZZINESS [None]
  - TREMOR [None]
  - EYE DISORDER [None]
  - MUSCULOSKELETAL STIFFNESS [None]
  - PRODUCT QUALITY ISSUE [None]
  - DROOLING [None]
  - COMA [None]
